FAERS Safety Report 8615872-4 (Version None)
Quarter: 2012Q3

REPORT INFORMATION
  Report Type: 
  Country: None (occurrence: None)
  Receive Date: 20120823
  Receipt Date: 20120815
  Transmission Date: 20120928
  Serious: Yes (Disabling, Other)
  Sender: FDA-Public Use
  Company Number: US-009507513-1206USA04703

PATIENT

DRUGS (3)
  1. ESTROGENS (UNSPECIFIED) [Concomitant]
     Dosage: UNK
     Dates: end: 20080101
  2. FOSAMAX [Suspect]
     Indication: OSTEOPOROSIS
     Route: 048
  3. FOSAMAX [Suspect]
     Indication: OSTEOPENIA

REACTIONS (7)
  - LOW TURNOVER OSTEOPATHY [None]
  - VITAMIN D DEFICIENCY [None]
  - FEMUR FRACTURE [None]
  - OSTEOPOROSIS [None]
  - STRESS FRACTURE [None]
  - ARTHROPATHY [None]
  - INTERNAL FIXATION OF FRACTURE [None]
